FAERS Safety Report 5447795-6 (Version None)
Quarter: 2007Q3

REPORT INFORMATION
  Report Type: 
  Country: None (occurrence: None)
  Receive Date: 20070910
  Receipt Date: 20070905
  Transmission Date: 20080115
  Serious: Yes (Death, Life-Threatening, Hospitalization)
  Sender: FDA-Public Use
  Company Number: CH-ASTRAZENECA-2007PK01844

PATIENT
  Age: 27 Year
  Sex: Male
  Weight: 84 kg

DRUGS (1)
  1. LIDOCAIN [Suspect]
     Route: 048

REACTIONS (10)
  - ACCIDENTAL OVERDOSE [None]
  - ANOXIC ENCEPHALOPATHY [None]
  - APNOEA [None]
  - BRAIN HERNIATION [None]
  - BRAIN OEDEMA [None]
  - CIRCULATORY COLLAPSE [None]
  - COMA [None]
  - GRAND MAL CONVULSION [None]
  - MUSCLE SPASMS [None]
  - WRONG DRUG ADMINISTERED [None]
